FAERS Safety Report 18200452 (Version 1)
Quarter: 2020Q3

REPORT INFORMATION
  Report Type: Spontaneous
  Country: IN (occurrence: IN)
  Receive Date: 20200826
  Receipt Date: 20200826
  Transmission Date: 20201103
  Serious: Yes (Death, Hospitalization)
  Sender: FDA-Public Use
  Company Number: NVSC2020IN233568

PATIENT
  Age: 78 Year
  Sex: Male

DRUGS (1)
  1. GLIVEC [Suspect]
     Active Substance: IMATINIB MESYLATE
     Indication: CHRONIC MYELOID LEUKAEMIA
     Dosage: 300 MG (300MG) (3 X 100MG TABLETS)
     Route: 065
     Dates: end: 20200720

REACTIONS (3)
  - Dyspnoea [Fatal]
  - COVID-19 [Fatal]
  - Respiratory failure [Unknown]

NARRATIVE: CASE EVENT DATE: 20200721
